FAERS Safety Report 8431451-6 (Version None)
Quarter: 2012Q2

REPORT INFORMATION
  Report Type: 
  Country: None (occurrence: None)
  Receive Date: 20120607
  Receipt Date: 20120607
  Transmission Date: 20120825
  Serious: Yes (Other)
  Sender: FDA-Public Use
  Company Number: None

PATIENT
  Sex: Female
  Weight: 63.5036 kg

DRUGS (1)
  1. KEPPRA [Suspect]
     Indication: MENINGIOMA BENIGN
     Dosage: 500 MG TWICE A DAY : 250 MG

REACTIONS (19)
  - DIZZINESS [None]
  - HEADACHE [None]
  - SINUSITIS [None]
  - WHITE BLOOD CELL COUNT [None]
  - ATAXIA [None]
  - URINE COLOUR ABNORMAL [None]
  - ASTHENIA [None]
  - PLATELET COUNT DECREASED [None]
  - RASH [None]
  - VERTIGO [None]
  - ARTHRALGIA [None]
  - NECK PAIN [None]
  - COUGH [None]
  - RHINORRHOEA [None]
  - PRURITUS [None]
  - DYSPNOEA [None]
  - NAUSEA [None]
  - BLOOD PRESSURE INCREASED [None]
  - ALOPECIA [None]
